FAERS Safety Report 18783134 (Version 3)
Quarter: 2021Q1

REPORT INFORMATION
  Report Type: Report from Study
  Country: US (occurrence: US)
  Receive Date: 20210125
  Receipt Date: 20210218
  Transmission Date: 20210419
  Serious: Yes (Hospitalization)
  Sender: FDA-Public Use
  Company Number: US-JNJFOC-20210115081

PATIENT
  Age: 73 Year
  Sex: Male
  Weight: 90.8 kg

DRUGS (3)
  1. ADEMPAS [Suspect]
     Active Substance: RIOCIGUAT
     Route: 065
  2. VELETRI [Suspect]
     Active Substance: EPOPROSTENOL
     Indication: PULMONARY ARTERIAL HYPERTENSION
     Route: 048
     Dates: end: 20210113
  3. ELIQUIS [Concomitant]
     Active Substance: APIXABAN

REACTIONS (11)
  - Heart rate irregular [Unknown]
  - Depressed mood [Unknown]
  - Ageusia [Unknown]
  - Decreased appetite [Unknown]
  - Dyspnoea [Unknown]
  - Rash [Unknown]
  - Product dose omission issue [Unknown]
  - Weight decreased [Unknown]
  - Pruritus [Unknown]
  - Nausea [Unknown]
  - Drug ineffective [Unknown]

NARRATIVE: CASE EVENT DATE: 20210109
